FAERS Safety Report 10646685 (Version 2)
Quarter: 2016Q4

REPORT INFORMATION
  Report Type: Report from Study
  Country: IN (occurrence: IN)
  Receive Date: 20141211
  Receipt Date: 20161112
  Transmission Date: 20170206
  Serious: Yes (Death)
  Sender: FDA-Public Use
  Company Number: IN-BAXTER-2014BAX073519

PATIENT

DRUGS (4)
  1. PROPOFOL. [Suspect]
     Active Substance: PROPOFOL
     Indication: FOETAL EXPOSURE TIMING UNSPECIFIED
     Dosage: 1.5 TO 2.5 MG/KG
     Route: 064
  2. MAGNESIUM SULFATE. [Suspect]
     Active Substance: MAGNESIUM SULFATE
     Indication: FOETAL EXPOSURE TIMING UNSPECIFIED
     Route: 064
  3. SUXAMETHONIUM [Suspect]
     Active Substance: SUCCINYLCHOLINE
     Indication: FOETAL EXPOSURE TIMING UNSPECIFIED
     Dosage: 1 TO 2 MG/KG
     Route: 064
  4. ISOFLURANE USP (AERRANE) 100ML, 250ML GLASS BOTTLES - INHALATION ANAES [Suspect]
     Active Substance: ISOFLURANE
     Indication: FOETAL EXPOSURE TIMING UNSPECIFIED
     Dosage: 0.3 TO 1.5 MAC AS REQUIRED
     Route: 064

REACTIONS (3)
  - Hyperbilirubinaemia [Fatal]
  - Sepsis [Fatal]
  - Foetal exposure during pregnancy [Recovered/Resolved]
